FAERS Safety Report 8281949-9 (Version None)
Quarter: 2012Q2

REPORT INFORMATION
  Report Type: 
  Country: None (occurrence: None)
  Receive Date: 20120413
  Receipt Date: 20110722
  Transmission Date: 20120825
  Serious: No
  Sender: FDA-Public Use
  Company Number: US-PFIZER INC-2011168353

PATIENT

DRUGS (2)
  1. PENICILLIN G BENZATHINE AND PENICILLIN G PROCAINE [Suspect]
     Dosage: UNK
  2. STREPTOMYCIN [Suspect]
     Dosage: UNK

REACTIONS (2)
  - RASH [None]
  - BLISTER [None]
